FAERS Safety Report 14170659 (Version 2)
Quarter: 2017Q4

REPORT INFORMATION
  Report Type: Report from Study
  Country: CA (occurrence: CA)
  Receive Date: 20171108
  Receipt Date: 20171114
  Transmission Date: 20180321
  Serious: Yes (Other)
  Sender: FDA-Public Use
  Company Number: CA-GLAXOSMITHKLINE-CA2017GSK163408

PATIENT
  Sex: Female

DRUGS (2)
  1. PREDNISONE. [Concomitant]
     Active Substance: PREDNISONE
     Indication: PRODUCT USED FOR UNKNOWN INDICATION
     Dosage: 5 MG, UNK
  2. SALBUTAMOL SULPHATE [Suspect]
     Active Substance: ALBUTEROL SULFATE
     Indication: PRODUCT USED FOR UNKNOWN INDICATION
     Dosage: UNK

REACTIONS (8)
  - Peak expiratory flow rate decreased [Unknown]
  - Chest discomfort [Unknown]
  - Lower respiratory tract infection [Recovering/Resolving]
  - Vocal cord dysfunction [Unknown]
  - Hypothyroidism [Unknown]
  - Depression [Unknown]
  - Nasopharyngitis [Recovering/Resolving]
  - Generalised anxiety disorder [Unknown]
